FAERS Safety Report 20692397 (Version 2)
Quarter: 2022Q3

REPORT INFORMATION
  Report Type: Spontaneous
  Country: US (occurrence: US)
  Receive Date: 20220409
  Receipt Date: 20220811
  Transmission Date: 20221026
  Serious: Yes (Hospitalization, Other)
  Sender: FDA-Public Use
  Company Number: US-BRISTOL-MYERS SQUIBB COMPANY-2022-014937

PATIENT
  Age: 68 Year
  Sex: Male

DRUGS (5)
  1. REVLIMID [Suspect]
     Active Substance: LENALIDOMIDE
     Indication: Plasma cell myeloma
     Route: 048
     Dates: start: 20220125
  2. REVLIMID [Suspect]
     Active Substance: LENALIDOMIDE
     Route: 048
     Dates: start: 20220128
  3. POMALYST [Suspect]
     Active Substance: POMALIDOMIDE
     Indication: Plasma cell myeloma
     Route: 048
     Dates: start: 20220701, end: 20220713
  4. POMALYST [Suspect]
     Active Substance: POMALIDOMIDE
     Dosage: FOR 21 DAYS AND 7 DAYS OFF
     Route: 048
  5. NINLARO [Concomitant]
     Active Substance: IXAZOMIB CITRATE
     Indication: Product used for unknown indication
     Route: 065

REACTIONS (2)
  - White blood cell count decreased [Unknown]
  - Pneumonia [Unknown]

NARRATIVE: CASE EVENT DATE: 20220716
